FAERS Safety Report 8853063 (Version 2)
Quarter: 2013Q1

REPORT INFORMATION
  Report Type: Spontaneous
  Country: US (occurrence: US)
  Receive Date: 20121022
  Receipt Date: 20130103
  Transmission Date: 20140127
  Serious: No
  Sender: FDA-Public Use
  Company Number: US-009507513-1210USA008786

PATIENT
  Age: 55 Year
  Sex: Female
  Weight: 72.11 kg

DRUGS (12)
  1. VICTRELIS [Suspect]
     Indication: HEPATITIS C
     Dosage: 800 MG, TID
     Route: 048
     Dates: start: 20121005
  2. RIBAVIRIN [Suspect]
     Dosage: 400 MG AM AND 600 MG PM
     Dates: start: 20120907
  3. PEGASYS [Suspect]
     Dosage: 180 MICROGRAM, QW
     Route: 058
     Dates: start: 20120907
  4. PREMARIN [Concomitant]
  5. OPANA [Concomitant]
  6. OXYCODONE [Concomitant]
  7. TRAMADOL HYDROCHLORIDE [Concomitant]
  8. CITALOPRAM [Concomitant]
  9. OMEGA-3 MARINE TRIGLYCERIDES [Concomitant]
  10. CALCIUM (UNSPECIFIED) [Concomitant]
  11. VITAMINS (UNSPECIFIED) [Concomitant]
  12. ASPIRIN [Concomitant]

REACTIONS (4)
  - Hypoaesthesia [Recovered/Resolved]
  - Vision blurred [Recovered/Resolved]
  - Headache [Recovered/Resolved]
  - Vertigo [Recovered/Resolved]
